FAERS Safety Report 9559812 (Version 1)
Quarter: 2013Q3

REPORT INFORMATION
  Report Type: Report from Study
  Country: US (occurrence: US)
  Receive Date: 20130927
  Receipt Date: 20130927
  Transmission Date: 20140515
  Serious: Yes (Hospitalization)
  Sender: FDA-Public Use
  Company Number: US-US-EMD SERONO, INC.-7239134

PATIENT
  Age: 14 Year
  Sex: Male
  Weight: 119 kg

DRUGS (8)
  1. SAIZEN [(SOMATROPIN (RDNA ORIGIN) FOR INJECTION)] [Suspect]
     Indication: HYPOPITUITARISM
     Dates: start: 20110110
  2. SAIZEN [(SOMATROPIN (RDNA ORIGIN) FOR INJECTION)] [Suspect]
     Indication: GROWTH HORMONE DEFICIENCY
  3. SYNTHROID [Concomitant]
     Indication: HYPOTHYROIDISM
  4. METFORMIN [Concomitant]
     Indication: PRODUCT USED FOR UNKNOWN INDICATION
     Dates: start: 201210, end: 201212
  5. DDAVP                              /00361901/ [Concomitant]
     Indication: DIABETES INSIPIDUS
     Dosage: 0.3 MG IN AM AND 0.4 MG IN PM.
  6. DELATESTRYL [Concomitant]
     Indication: HYPOGONADISM
     Dosage: 100 MG/ML
  7. CORTEF                             /00028601/ [Concomitant]
     Indication: PRODUCT USED FOR UNKNOWN INDICATION
  8. SOLU-CORTEF [Concomitant]
     Indication: ADRENAL INSUFFICIENCY
     Dosage: 100 MG/VAIL

REACTIONS (8)
  - Campylobacter infection [Recovering/Resolving]
  - Sleep apnoea syndrome [Unknown]
  - Drug intolerance [Unknown]
  - Acanthosis nigricans [Unknown]
  - Anxiety [Unknown]
  - Mood swings [Unknown]
  - Snoring [Unknown]
  - Depression [Unknown]
